FAERS Safety Report 23213233 (Version 1)
Quarter: 2023Q4

REPORT INFORMATION
  Report Type: Spontaneous
  Country: FR (occurrence: FR)
  Receive Date: 20231121
  Receipt Date: 20231121
  Transmission Date: 20240110
  Serious: Yes (Death)
  Sender: FDA-Public Use
  Company Number: FR-AFSSAPS-RN2023000826

PATIENT
  Age: 51 Year
  Sex: Female
  Weight: 43 kg

DRUGS (3)
  1. IRINOTECAN [Suspect]
     Active Substance: IRINOTECAN
     Indication: Rectal adenocarcinoma
     Dosage: UNK
     Route: 040
     Dates: start: 20230717, end: 20230717
  2. OXALIPLATIN [Suspect]
     Active Substance: OXALIPLATIN
     Indication: Rectal adenocarcinoma
     Dosage: UNK
     Route: 040
     Dates: start: 20230717, end: 20230717
  3. FLUOROURACIL [Suspect]
     Active Substance: FLUOROURACIL
     Indication: Rectal adenocarcinoma
     Dosage: BOLUS THEN SAP OVER 44 HOURS
     Route: 040
     Dates: start: 20230717, end: 20230719

REACTIONS (1)
  - Stress cardiomyopathy [Fatal]

NARRATIVE: CASE EVENT DATE: 20230718
